FAERS Safety Report 7721476-8 (Version None)
Quarter: 2011Q3

REPORT INFORMATION
  Report Type: 
  Country: None (occurrence: None)
  Receive Date: 20110831
  Receipt Date: 20110816
  Transmission Date: 20111222
  Serious: Yes (Other)
  Sender: FDA-Public Use
  Company Number: US-JNJFOC-20110412475

PATIENT
  Age: 55 Year
  Sex: Male
  Weight: 120.2 kg

DRUGS (7)
  1. NEOSPORIN [Suspect]
     Dosage: JUST A LITTLE BIT AT THE TIP OF FINGER
     Route: 061
     Dates: start: 20110418
  2. NEOSPORIN [Suspect]
     Indication: SCAR
     Dosage: JUST A LITTLE BIT AT THE TIP OF FINGER
     Route: 061
     Dates: start: 20110418
  3. NEOSPORIN [Suspect]
     Indication: SKIN LESION
     Dosage: JUST A LITTLE BIT AT THE TIP OF FINGER
     Route: 061
     Dates: start: 20110418
  4. NEOSPORIN [Suspect]
     Route: 061
     Dates: start: 20110423, end: 20110423
  5. NEXIUM [Concomitant]
     Indication: ULCER
     Dates: start: 20010101
  6. NEOSPORIN [Suspect]
     Route: 061
     Dates: start: 20110423, end: 20110423
  7. NEOSPORIN [Suspect]
     Indication: TANNING
     Route: 061
     Dates: start: 20110423, end: 20110423

REACTIONS (17)
  - OFF LABEL USE [None]
  - SKIN EXFOLIATION [None]
  - CHEST DISCOMFORT [None]
  - SUNBURN [None]
  - PRODUCT QUALITY ISSUE [None]
  - EMOTIONAL DISORDER [None]
  - APPLICATION SITE INFECTION [None]
  - ULCER [None]
  - BLISTER [None]
  - INSOMNIA [None]
  - PHOTOSENSITIVITY REACTION [None]
  - STRESS [None]
  - NOSE DEFORMITY [None]
  - SCAB [None]
  - WOUND [None]
  - OROPHARYNGEAL PAIN [None]
  - WEIGHT DECREASED [None]
